FAERS Safety Report 5699801-1 (Version None)
Quarter: 2008Q2

REPORT INFORMATION
  Report Type: 
  Country: None (occurrence: None)
  Receive Date: 20080410
  Receipt Date: 20080410
  Transmission Date: 20081010
  Serious: Yes (Life-Threatening)
  Sender: FDA-Public Use
  Company Number: None

PATIENT
  Age: 62 Year
  Sex: Male
  Weight: 76.5672 kg

DRUGS (13)
  1. HEPARIN SODIUM [Suspect]
     Indication: MITRAL VALVE REPLACEMENT
     Dosage: 5000 1 UNITS ONCE IVP; X 1 @ 1730
     Route: 042
     Dates: start: 20080329
  2. HEPARIN SODIUM 25,000 UNITS IN DEXTROSE 5% [Suspect]
     Indication: MITRAL VALVE REPLACEMENT
     Dosage: 1 UNITS PER HOUR IV; X 1 @ 1730 X 45 MINUTES
     Route: 042
     Dates: start: 20080329
  3. COUMADIN [Concomitant]
  4. LEVAQUIN [Concomitant]
  5. NEXIUM [Concomitant]
  6. MORPHINE [Concomitant]
  7. ZOFRAN [Concomitant]
  8. LIPITOR [Concomitant]
  9. ASPIRIN [Concomitant]
  10. PLAVIX [Concomitant]
  11. VIT K [Concomitant]
  12. LISINOPRIL [Concomitant]
  13. BENTYL [Concomitant]

REACTIONS (9)
  - ANXIETY [None]
  - CHEST PAIN [None]
  - DYSPNOEA [None]
  - FEELING HOT [None]
  - FLUSHING [None]
  - HYPERTENSION [None]
  - HYPOAESTHESIA [None]
  - HYPOAESTHESIA ORAL [None]
  - PHARMACEUTICAL PRODUCT COMPLAINT [None]
